FAERS Safety Report 5401374-5 (Version None)
Quarter: 2007Q3

REPORT INFORMATION
  Report Type: 
  Country: None (occurrence: None)
  Receive Date: 20070731
  Receipt Date: 20070718
  Transmission Date: 20080115
  Serious: Yes (Hospitalization, Other)
  Sender: FDA-Public Use
  Company Number: B0479191A

PATIENT
  Age: 77 Year
  Sex: Male

DRUGS (3)
  1. TAGAMET [Suspect]
     Indication: GASTRIC CANCER
     Route: 048
     Dates: start: 20070607, end: 20070613
  2. ASPIRIN [Concomitant]
     Indication: CEREBRAL INFARCTION
     Dosage: 100MG PER DAY
     Route: 048
     Dates: start: 20060501, end: 20070613
  3. FERROMIA [Concomitant]
     Route: 048
     Dates: start: 20070607, end: 20070613

REACTIONS (5)
  - DRUG ERUPTION [None]
  - DYSPNOEA [None]
  - INTERSTITIAL LUNG DISEASE [None]
  - PYREXIA [None]
  - RASH ERYTHEMATOUS [None]
